FAERS Safety Report 11741295 (Version 1)
Quarter: 2015Q4

REPORT INFORMATION
  Report Type: Spontaneous
  Country: EG (occurrence: EG)
  Receive Date: 20151116
  Receipt Date: 20151116
  Transmission Date: 20160304
  Serious: Yes (Other)
  Sender: FDA-Public Use
  Company Number: EG-ROCHE-1661519

PATIENT
  Age: 65 Year
  Sex: Female

DRUGS (4)
  1. LUCENTIS [Suspect]
     Active Substance: RANIBIZUMAB
     Indication: MACULAR OEDEMA
     Dosage: FIRST INJECTION IN LEFT EYE
     Route: 050
     Dates: start: 20151011
  2. SOLUPRED (EGYPT) [Concomitant]
     Dosage: PREDNISOLONE METASULFOBENZOATE SODIUM ORAL STEROID
     Route: 048
  3. LUCENTIS [Suspect]
     Active Substance: RANIBIZUMAB
     Dosage: SECOND INJECTION
     Route: 050
     Dates: start: 201510
  4. INSULIN [Concomitant]
     Active Substance: INSULIN NOS

REACTIONS (3)
  - Vision blurred [Recovering/Resolving]
  - Eye discharge [Recovered/Resolved]
  - Eye inflammation [Recovering/Resolving]

NARRATIVE: CASE EVENT DATE: 20151014
